FAERS Safety Report 4421227-9 (Version None)
Quarter: 2004Q3

REPORT INFORMATION
  Report Type: 
  Country: None (occurrence: None)
  Receive Date: 20040708
  Receipt Date: 20040105
  Transmission Date: 20050211
  Serious: No
  Sender: FDA-Public Use
  Company Number: US062439

PATIENT
  Age: 40 Year
  Sex: Female

DRUGS (1)
  1. KINERET [Suspect]
     Indication: RHEUMATOID ARTHRITIS
     Dosage: 100 MG, DAILY, SC
     Route: 058

REACTIONS (2)
  - NAUSEA [None]
  - TREMOR [None]
